FAERS Safety Report 15810001 (Version 1)
Quarter: 2019Q1

REPORT INFORMATION
  Report Type: Spontaneous
  Country: US (occurrence: US)
  Receive Date: 20190111
  Receipt Date: 20190111
  Transmission Date: 20190417
  Serious: No
  Sender: FDA-Public Use
  Company Number: US-ROCHE-2121603

PATIENT
  Age: 36 Year
  Sex: Female

DRUGS (1)
  1. RITUXAN [Suspect]
     Active Substance: RITUXIMAB
     Indication: NEUROMYELITIS OPTICA SPECTRUM DISORDER
     Dosage: 100 ML (1000 MG) IV ONCE ON DAY 1, PRESENT (10 MG/ML)
     Route: 042
     Dates: start: 20170411

REACTIONS (4)
  - Headache [Unknown]
  - Intentional product use issue [Unknown]
  - Off label use [Unknown]
  - Dysuria [Unknown]

NARRATIVE: CASE EVENT DATE: 20180501
